FAERS Safety Report 20878203 (Version 2)
Quarter: 2023Q2

REPORT INFORMATION
  Report Type: Spontaneous
  Country: US (occurrence: US)
  Receive Date: 20220526
  Receipt Date: 20230627
  Transmission Date: 20230722
  Serious: No
  Sender: FDA-Public Use
  Company Number: US-HORIZON THERAPEUTICS-HZN-2021-000918

PATIENT

DRUGS (10)
  1. RAYOS [Suspect]
     Active Substance: PREDNISONE
     Indication: Rheumatoid arthritis
     Dosage: 2 DOSAGE FORM, QD
     Route: 048
  2. RAYOS [Suspect]
     Active Substance: PREDNISONE
     Dosage: 1 MG, BID
     Route: 048
     Dates: start: 201808
  3. RAYOS [Suspect]
     Active Substance: PREDNISONE
     Dosage: 1 MG (TAKE ONE OR TWO TABLETS AT BEDTIME) (PACKING SIZE 30MG)
     Route: 048
     Dates: start: 20210203
  4. RAYOS [Suspect]
     Active Substance: PREDNISONE
     Dosage: 1 MG, TAKE 1 OR 2 TABLETS BY MOUTH EVERY NIGHT AT BEDTIME AS DIRECTED BY PHYSICIAN
     Route: 048
     Dates: start: 20210402
  5. WELLBUTRIN [Suspect]
     Active Substance: BUPROPION HYDROCHLORIDE
     Route: 065
  6. AMLODIPINE [Concomitant]
     Active Substance: AMLODIPINE BESYLATE
     Indication: Blood pressure measurement
  7. LEVOTHYROXINE [Concomitant]
     Active Substance: LEVOTHYROXINE
     Indication: Thyroid disorder
  8. PROLIA [Concomitant]
     Active Substance: DENOSUMAB
     Indication: Bone density abnormal
     Dosage: ONCE EVERY 6 MONTHS
  9. ROPINIROLE [Concomitant]
     Active Substance: ROPINIROLE
     Indication: Restless legs syndrome
  10. FOLIC ACID [Concomitant]
     Active Substance: FOLIC ACID
     Indication: Prophylaxis

REACTIONS (5)
  - Anxiety [Unknown]
  - Limb injury [Unknown]
  - Fatigue [Recovered/Resolved]
  - Pain [Recovered/Resolved]
  - Malaise [Unknown]
